FAERS Safety Report 16868817 (Version 5)
Quarter: 2020Q3

REPORT INFORMATION
  Report Type: Report from Study
  Country: CN (occurrence: CN)
  Receive Date: 20190930
  Receipt Date: 20200828
  Transmission Date: 20201102
  Serious: Yes (Hospitalization)
  Sender: FDA-Public Use
  Company Number: CN-PFIZER INC-2019407029

PATIENT
  Age: 56 Year
  Sex: Male
  Weight: 65 kg

DRUGS (1)
  1. LORLATINIB [Suspect]
     Active Substance: LORLATINIB
     Indication: NON-SMALL CELL LUNG CANCER
     Dosage: 100 MG, 1X/DAY
     Route: 048
     Dates: start: 20190807, end: 20190920

REACTIONS (2)
  - Condition aggravated [Recovered/Resolved]
  - Cholecystitis [Recovered/Resolved]

NARRATIVE: CASE EVENT DATE: 20190913
